FAERS Safety Report 15901275 (Version 1)
Quarter: 2019Q1

REPORT INFORMATION
  Report Type: Spontaneous
  Country: ZA (occurrence: ZA)
  Receive Date: 20190201
  Receipt Date: 20190201
  Transmission Date: 20190417
  Serious: Yes (Hospitalization)
  Sender: FDA-Public Use
  Company Number: ZA-ASTRAZENECA-2019SE17721

PATIENT
  Age: 25753 Day
  Sex: Female

DRUGS (13)
  1. TRUSTAN [Suspect]
     Active Substance: ESOMEPRAZOLE
     Indication: DYSPEPSIA
     Dosage: 40.0MG UNKNOWN
     Route: 048
     Dates: start: 201808
  2. FELODIPINE. [Suspect]
     Active Substance: FELODIPINE
     Indication: HYPERTENSION
     Dosage: 5.0MG UNKNOWN
     Route: 048
     Dates: start: 201810
  3. FORTZAAR [Suspect]
     Active Substance: HYDROCHLOROTHIAZIDE\LOSARTAN POTASSIUM
     Indication: HYPERTENSION
     Dosage: 100.0MG UNKNOWN
     Route: 048
     Dates: start: 201808
  4. VENTOLIN [Suspect]
     Active Substance: ALBUTEROL SULFATE
     Indication: ASTHMA
     Dosage: 100.0UG UNKNOWN
     Route: 007
     Dates: start: 201808
  5. PRAVASTATIN. [Suspect]
     Active Substance: PRAVASTATIN
     Indication: BLOOD CHOLESTEROL ABNORMAL
     Dosage: 20.0MG UNKNOWN
     Route: 048
     Dates: start: 201808
  6. MONTELUKAST [Suspect]
     Active Substance: MONTELUKAST SODIUM
     Indication: ASTHMA
     Dosage: 10.0MG UNKNOWN
     Route: 048
     Dates: start: 201810
  7. DISPRIN CARDIOCARE [Suspect]
     Active Substance: ASPIRIN
     Indication: ANTICOAGULANT THERAPY
     Route: 048
     Dates: start: 201811
  8. CALCIFEROL (ERGOCALCIFEROL) [Suspect]
     Active Substance: ERGOCALCIFEROL
     Indication: VITAMIN D
     Dosage: 50000.0IU UNKNOWN
     Route: 048
     Dates: start: 201808
  9. TIOTROPIUM BROMIDE [Suspect]
     Active Substance: TIOTROPIUM BROMIDE
     Indication: ASTHMA
     Dosage: 18.0UG UNKNOWN
     Route: 007
     Dates: start: 201808
  10. THEOPHYLLINE [Suspect]
     Active Substance: THEOPHYLLINE ANHYDROUS
     Indication: ASTHMA
     Dosage: 200.0MG UNKNOWN
     Route: 048
     Dates: start: 201808
  11. SYMBICORD [Suspect]
     Active Substance: BUDESONIDE\FORMOTEROL
     Indication: ASTHMA
     Dosage: 160MCG 120 DOSE160.0UG UNKNOWN
     Route: 055
     Dates: start: 201808
  12. AVAMYS [Suspect]
     Active Substance: FLUTICASONE FUROATE
     Indication: RHINITIS ALLERGIC
     Dosage: 27.0UG UNKNOWN
     Route: 045
     Dates: start: 201901
  13. OSTEOBON [Suspect]
     Active Substance: ALENDRONATE SODIUM
     Indication: OSTEOPOROSIS
     Dosage: 70.0MG UNKNOWN
     Route: 048
     Dates: start: 201809, end: 201810

REACTIONS (1)
  - Asthma [Unknown]

NARRATIVE: CASE EVENT DATE: 20190125
